FAERS Safety Report 5723223-8 (Version None)
Quarter: 2008Q2

REPORT INFORMATION
  Report Type: 
  Country: None (occurrence: None)
  Receive Date: 20080430
  Receipt Date: 20080422
  Transmission Date: 20081010
  Serious: Yes (Disabling)
  Sender: FDA-Public Use
  Company Number: FR-BRISTOL-MYERS SQUIBB COMPANY-14169916

PATIENT
  Age: 48 Year
  Sex: Female

DRUGS (12)
  1. ENDOXAN [Suspect]
     Indication: BREAST CANCER
     Route: 042
     Dates: start: 20061002, end: 20070123
  2. NEULASTA [Suspect]
     Indication: PROPHYLAXIS
     Route: 058
  3. POLARAMINE [Suspect]
     Indication: PREMEDICATION
     Route: 065
  4. TAXOTERE [Suspect]
     Indication: BREAST CANCER
     Route: 042
     Dates: start: 20061002, end: 20070123
  5. EPIRUBICIN HCL [Suspect]
     Indication: BREAST CANCER
     Route: 042
     Dates: start: 20061002, end: 20070123
  6. CARDIOXANE [Suspect]
     Indication: BREAST CANCER
     Route: 042
     Dates: start: 20061002, end: 20070123
  7. ZOPHREN [Suspect]
     Indication: PREMEDICATION
     Route: 065
  8. PRIMPERAN TAB [Suspect]
     Indication: PREMEDICATION
     Route: 065
  9. OSMOTAN G [Suspect]
     Indication: PREMEDICATION
     Route: 065
  10. TRASTUZUMAB [Suspect]
     Indication: BREAST CANCER
     Route: 042
     Dates: start: 20070515, end: 20071030
  11. TAMOXIFEN CITRATE [Suspect]
     Indication: HORMONE THERAPY
     Route: 048
     Dates: start: 20070501
  12. METHYLPREDNISOLONE [Suspect]
     Indication: PREMEDICATION
     Route: 065

REACTIONS (1)
  - HYPOTHYROIDISM [None]
